FAERS Safety Report 22041641 (Version 6)
Quarter: 2023Q2

REPORT INFORMATION
  Report Type: Spontaneous
  Country: US (occurrence: US)
  Receive Date: 20230227
  Receipt Date: 20230627
  Transmission Date: 20230722
  Serious: Yes (Other)
  Sender: FDA-Public Use
  Company Number: US-SA-SAC20230224001491

PATIENT
  Sex: Female
  Weight: 85.72 kg

DRUGS (3)
  1. DUPIXENT [Suspect]
     Active Substance: DUPILUMAB
     Indication: Cutaneous T-cell lymphoma
     Dosage: 600 MG, 1X
     Route: 058
  2. DUPIXENT [Suspect]
     Active Substance: DUPILUMAB
     Indication: Dermatitis atopic
     Dosage: 300 MG, QOW
     Route: 058
  3. BEXAROTENE [Concomitant]
     Active Substance: BEXAROTENE
     Dosage: UNK

REACTIONS (6)
  - Cutaneous T-cell lymphoma [Not Recovered/Not Resolved]
  - Condition aggravated [Not Recovered/Not Resolved]
  - Skin hyperpigmentation [Unknown]
  - Pruritus [Recovering/Resolving]
  - Unintentional use for unapproved indication [Unknown]
  - Dermatitis atopic [Unknown]
